FAERS Safety Report 17041350 (Version 1)
Quarter: 2019Q4

REPORT INFORMATION
  Report Type: Spontaneous
  Country: GB (occurrence: GB)
  Receive Date: 20191118
  Receipt Date: 20191118
  Transmission Date: 20200122
  Serious: Yes (Other)
  Sender: FDA-Public Use
  Company Number: GB-ROCHE-2466648

PATIENT

DRUGS (1)
  1. OCREVUS [Suspect]
     Active Substance: OCRELIZUMAB
     Indication: INTENTIONAL PRODUCT USE ISSUE
     Route: 042

REACTIONS (5)
  - Oropharyngeal pain [Unknown]
  - Dysphonia [Unknown]
  - Headache [Unknown]
  - Dyspnoea [Unknown]
  - Palpitations [Unknown]
